FAERS Safety Report 4537031-7 (Version None)
Quarter: 2004Q4

REPORT INFORMATION
  Report Type: 
  Country: None (occurrence: None)
  Receive Date: 20041214
  Receipt Date: 20041005
  Transmission Date: 20050328
  Serious: No
  Sender: FDA-Public Use
  Company Number: 2004238208US

PATIENT
  Sex: Female
  Weight: 59.9 kg

DRUGS (2)
  1. BEXTRA [Suspect]
     Indication: PAIN IN EXTREMITY
     Dosage: 10 MG, QD, ORAL
     Route: 048
     Dates: start: 20041004, end: 20041005
  2. UNSPECIFIED MEDICATIONS [Concomitant]

REACTIONS (6)
  - DISCOMFORT [None]
  - DISTURBANCE IN ATTENTION [None]
  - DIZZINESS [None]
  - FEELING ABNORMAL [None]
  - NAUSEA [None]
  - RETCHING [None]
